FAERS Safety Report 4597103-8 (Version None)
Quarter: 2005Q1

REPORT INFORMATION
  Report Type: 
  Country: None (occurrence: None)
  Receive Date: 20050301
  Receipt Date: 20050216
  Transmission Date: 20050727
  Serious: Yes (Other)
  Sender: FDA-Public Use
  Company Number: 2005036672

PATIENT
  Age: 75 Year
  Sex: Male

DRUGS (3)
  1. CEFOPERAZONE/SULBACTAM (SULBACTAM CEFOPERAZONE) [Suspect]
     Indication: ABDOMINAL ABSCESS
     Dosage: INTRAVENOUS
     Route: 042
  2. CEFOPERAZONE/SULBACTAM (SULBACTAM CEFOPERAZONE) [Suspect]
     Indication: ENTEROCOLITIS
     Dosage: INTRAVENOUS
     Route: 042
  3. CEFOPERAZONE/SULBACTAM (SULBACTAM CEFOPERAZONE) [Suspect]
     Indication: INTESTINAL OBSTRUCTION
     Dosage: INTRAVENOUS
     Route: 042

REACTIONS (10)
  - ACTIVATED PARTIAL THROMBOPLASTIN TIME PROLONGED [None]
  - ASTHENIA [None]
  - BLOODY DISCHARGE [None]
  - COAGULOPATHY [None]
  - DRUG INEFFECTIVE [None]
  - EXTRADURAL HAEMATOMA [None]
  - HAEMORRHAGE [None]
  - INTESTINAL OBSTRUCTION [None]
  - PROTHROMBIN TIME PROLONGED [None]
  - SENSORIMOTOR DISORDER [None]
